FAERS Safety Report 4947874-3 (Version None)
Quarter: 2006Q1

REPORT INFORMATION
  Report Type: 
  Country: None (occurrence: None)
  Receive Date: 20060314
  Receipt Date: 20060303
  Transmission Date: 20060701
  Serious: Yes (Hospitalization, Other)
  Sender: FDA-Public Use
  Company Number: 2006032223

PATIENT
  Age: 53 Year
  Sex: Female
  Weight: 81.1939 kg

DRUGS (20)
  1. NEURONTIN [Suspect]
     Indication: PAIN
     Dosage: (300 MG,)
  2. LYRICA [Suspect]
     Indication: PAIN
     Dosage: 75 MG (25 MG, 3 IN 1 D),
     Dates: start: 20060302, end: 20060303
  3. NOVOLOG [Concomitant]
  4. LANTUS [Concomitant]
  5. PROGRAF [Concomitant]
  6. PREDNISONE TAB [Concomitant]
  7. SYNTHROID [Concomitant]
  8. SODIUM BICARBONATE IN PLASTIC CONTAINER [Concomitant]
  9. ASPIRIN [Concomitant]
  10. NEXIUM [Concomitant]
  11. CALCIUM (CALCIUM) [Concomitant]
  12. ACTONEL [Concomitant]
  13. ALPHAGAN [Concomitant]
  14. TOPROL-XL [Concomitant]
  15. PLAVIX [Concomitant]
  16. TRICOR [Concomitant]
  17. VALSARTAN [Concomitant]
  18. MAGNESIUM (MAGNESIUM) [Concomitant]
  19. DYNACIRC [Concomitant]
  20. ZELNORM [Concomitant]

REACTIONS (5)
  - CEREBROVASCULAR ACCIDENT [None]
  - DIZZINESS [None]
  - FEELING DRUNK [None]
  - MYOCARDIAL INFARCTION [None]
  - PAIN [None]
